FAERS Safety Report 4991082-7 (Version None)
Quarter: 2006Q2

REPORT INFORMATION
  Report Type: 
  Country: None (occurrence: None)
  Receive Date: 20060428
  Receipt Date: 20050609
  Transmission Date: 20061013
  Serious: Yes (Hospitalization)
  Sender: FDA-Public Use
  Company Number: 25947

PATIENT
  Age: 20 Year
  Sex: Female

DRUGS (3)
  1. ALDARA [Suspect]
     Indication: CONDYLOMA ACUMINATUM
     Dosage: 1 SACHET, 3 IN 1 WEEK(S), TOPICAL
     Route: 061
     Dates: start: 20041214, end: 20050204
  2. PRENATAL VITAMINS [Concomitant]
  3. UNSPECIFIED HIGH BLOOD PRESSURE PILL [Concomitant]

REACTIONS (6)
  - APPLICATION SITE IRRITATION [None]
  - APPLICATION SITE OEDEMA [None]
  - APPLICATION SITE PAIN [None]
  - DRUG EXPOSURE DURING PREGNANCY [None]
  - INDUCED LABOUR [None]
  - PRE-ECLAMPSIA [None]
